FAERS Safety Report 12406134 (Version 3)
Quarter: 2016Q3

REPORT INFORMATION
  Report Type: Spontaneous
  Country: JP (occurrence: JP)
  Receive Date: 20160526
  Receipt Date: 20160712
  Transmission Date: 20161109
  Serious: Yes (Other)
  Sender: FDA-Public Use
  Company Number: JP-ASTELLAS-2016JP007838

PATIENT
  Age: 82 Year
  Sex: Female
  Weight: 49 kg

DRUGS (6)
  1. FLUITRAN [Concomitant]
     Active Substance: TRICHLORMETHIAZIDE
     Indication: HYPERTENSION
  2. OPALMON [Concomitant]
     Active Substance: LIMAPROST
     Indication: LUMBAR SPINAL STENOSIS
     Route: 048
     Dates: start: 20160506
  3. NEXIUM [Concomitant]
     Active Substance: ESOMEPRAZOLE MAGNESIUM
     Indication: GASTROOESOPHAGEAL REFLUX DISEASE
     Route: 048
     Dates: start: 20160511, end: 20160603
  4. BETANIS [Suspect]
     Active Substance: MIRABEGRON
     Indication: HYPERTONIC BLADDER
     Route: 048
     Dates: start: 20160128, end: 20160517
  5. FLUITRAN [Concomitant]
     Active Substance: TRICHLORMETHIAZIDE
     Indication: OEDEMA
     Route: 048
     Dates: start: 20160506, end: 20160603
  6. LIVALO [Concomitant]
     Active Substance: PITAVASTATIN CALCIUM
     Indication: DYSLIPIDAEMIA
     Route: 048
     Dates: start: 20151014

REACTIONS (8)
  - Vomiting [Recovering/Resolving]
  - Chills [Recovered/Resolved]
  - Dysphoria [Recovered/Resolved]
  - Chest pain [Recovered/Resolved]
  - Cold sweat [Recovered/Resolved]
  - Dizziness [Recovered/Resolved]
  - Nausea [Recovered/Resolved]
  - Malaise [Unknown]

NARRATIVE: CASE EVENT DATE: 20160508
